FAERS Safety Report 17586748 (Version 1)
Quarter: 2020Q1

REPORT INFORMATION
  Report Type: Spontaneous
  Country: US (occurrence: US)
  Receive Date: 20200326
  Receipt Date: 20200326
  Transmission Date: 20200409
  Serious: Yes (Hospitalization, Other)
  Sender: FDA-Public Use
  Company Number: US-009507513-2003USA008409

PATIENT
  Age: 54 Year
  Sex: Female

DRUGS (9)
  1. KEYTRUDA [Suspect]
     Active Substance: PEMBROLIZUMAB
     Indication: LUNG CANCER METASTATIC
     Dosage: 200 MG EVERY 3 WEEKS
     Route: 042
     Dates: start: 201902, end: 201902
  2. VICTOZA [Concomitant]
     Active Substance: LIRAGLUTIDE
  3. PROZAC [Concomitant]
     Active Substance: FLUOXETINE HYDROCHLORIDE
  4. GEMFIBROZIL. [Concomitant]
     Active Substance: GEMFIBROZIL
  5. COZAAR [Concomitant]
     Active Substance: LOSARTAN POTASSIUM
  6. CARBOPLATIN. [Suspect]
     Active Substance: CARBOPLATIN
     Indication: LUNG CANCER METASTATIC
     Dosage: UNK
     Dates: start: 20190228, end: 201905
  7. ATORVASTATIN [Concomitant]
     Active Substance: ATORVASTATIN
  8. KEYTRUDA [Suspect]
     Active Substance: PEMBROLIZUMAB
     Dosage: 200 MG EVERY 3 WEEKS
     Route: 042
     Dates: start: 201905
  9. FLONASE [Concomitant]
     Active Substance: FLUTICASONE PROPIONATE

REACTIONS (15)
  - Haematochezia [Unknown]
  - Diarrhoea [Unknown]
  - Flank pain [Recovering/Resolving]
  - Central venous catheterisation [Unknown]
  - Wheezing [Unknown]
  - Kidney infection [Recovering/Resolving]
  - Pneumonia [Recovering/Resolving]
  - Therapy non-responder [Recovering/Resolving]
  - Dyspnoea [Unknown]
  - Escherichia sepsis [Recovering/Resolving]
  - Skin exfoliation [Unknown]
  - Nephrolithiasis [Unknown]
  - Vitiligo [Unknown]
  - Hypersensitivity [Unknown]
  - Dry skin [Unknown]

NARRATIVE: CASE EVENT DATE: 2019
